FAERS Safety Report 8247147-X (Version None)
Quarter: 2012Q1

REPORT INFORMATION
  Report Type: 
  Country: None (occurrence: None)
  Receive Date: 20120330
  Receipt Date: 20120321
  Transmission Date: 20120608
  Serious: Yes (Other)
  Sender: FDA-Public Use
  Company Number: BR-JNJFOC-20120311050

PATIENT
  Sex: Male

DRUGS (2)
  1. CLONAZEPAM [Suspect]
     Indication: PRODUCT USED FOR UNKNOWN INDICATION
     Route: 065
  2. HALDOL [Suspect]
     Indication: PRODUCT USED FOR UNKNOWN INDICATION
     Route: 065

REACTIONS (6)
  - NERVOUSNESS [None]
  - ADVERSE DRUG REACTION [None]
  - FALL [None]
  - DRUG DEPENDENCE [None]
  - CONFUSIONAL STATE [None]
  - SPEECH DISORDER [None]
